FAERS Safety Report 6594160-4 (Version None)
Quarter: 2010Q1

REPORT INFORMATION
  Report Type: 
  Country: None (occurrence: None)
  Receive Date: 20100222
  Receipt Date: 20100211
  Transmission Date: 20100710
  Serious: Yes (Other)
  Sender: FDA-Public Use
  Company Number: CA-JNJFOC-20100206666

PATIENT
  Sex: Male

DRUGS (3)
  1. REMICADE [Suspect]
     Indication: ANKYLOSING SPONDYLITIS
     Route: 042
  2. ZOLOFT [Concomitant]
     Indication: DEPRESSION
  3. SEROQUEL [Concomitant]
     Indication: DEPRESSION

REACTIONS (1)
  - DEPRESSION [None]
